FAERS Safety Report 8880637 (Version 1)
Quarter: 2012Q4

REPORT INFORMATION
  Report Type: 
  Country: JP (occurrence: JP)
  Receive Date: 20121031
  Receipt Date: 20121031
  Transmission Date: 20130627
  Serious: Yes (Hospitalization)
  Sender: FDA-Public Use
  Company Number: JP-ABBOTT-12P-087-1000924-00

PATIENT
  Age: 43 Year
  Sex: Male

DRUGS (2)
  1. LEVOBUPIVACAINE [Suspect]
     Indication: ANAESTHESIA PROCEDURE
     Dosage: 3 mL/h
     Route: 008
  2. STEROID [Concomitant]
     Indication: COLLAGEN DISORDER

REACTIONS (3)
  - Sensorimotor disorder [Not Recovered/Not Resolved]
  - Bladder disorder [Not Recovered/Not Resolved]
  - Anorectal disorder [Not Recovered/Not Resolved]
